FAERS Safety Report 22183089 (Version 1)
Quarter: 2023Q2

REPORT INFORMATION
  Report Type: Spontaneous
  Country: US (occurrence: US)
  Receive Date: 20230406
  Receipt Date: 20230406
  Transmission Date: 20230721
  Serious: No
  Sender: FDA-Public Use
  Company Number: US-Evolus, Inc.-2022EV000350

PATIENT
  Age: 61 Year
  Sex: Female
  Weight: 52.210 kg

DRUGS (3)
  1. JEUVEAU [Suspect]
     Active Substance: PRABOTULINUMTOXINA-XVFS
     Indication: Skin wrinkling
     Dosage: CROWS FEET: 15 IU EACH SIDE
     Dates: start: 20221114, end: 20221114
  2. JEUVEAU [Suspect]
     Active Substance: PRABOTULINUMTOXINA-XVFS
     Dosage: CROWS FEET: 15 IU EACH SIDE
     Dates: start: 20221121, end: 20221121
  3. JEUVEAU [Suspect]
     Active Substance: PRABOTULINUMTOXINA-XVFS
     Dates: start: 20220228, end: 20220228

REACTIONS (2)
  - Drug ineffective [Not Recovered/Not Resolved]
  - Off label use [Unknown]

NARRATIVE: CASE EVENT DATE: 20221114
